FAERS Safety Report 10251064 (Version 1)
Quarter: 2014Q2

REPORT INFORMATION
  Report Type: Report from Study
  Country: DE (occurrence: TR)
  Receive Date: 20140620
  Receipt Date: 20140620
  Transmission Date: 20141212
  Serious: Yes (Death)
  Sender: FDA-Public Use
  Company Number: DE-ACTELION-A-US2014-100753

PATIENT
  Age: 40 Year
  Sex: 0
  Weight: 58 kg

DRUGS (1)
  1. VENTAVIS [Suspect]
     Indication: PULMONARY HYPERTENSION
     Dosage: 8XDILY
     Route: 055
     Dates: start: 20100901, end: 20140605

REACTIONS (1)
  - Death [Fatal]
